FAERS Safety Report 8321053-4 (Version None)
Quarter: 2012Q2

REPORT INFORMATION
  Report Type: 
  Country: None (occurrence: None)
  Receive Date: 20120430
  Receipt Date: 20120426
  Transmission Date: 20120825
  Serious: Yes (Death, Hospitalization)
  Sender: FDA-Public Use
  Company Number: PHHY2011MX106613

PATIENT
  Age: 84 Year
  Sex: Female

DRUGS (2)
  1. DIOVAN HCT [Suspect]
     Indication: HYPERTENSION
     Dosage: 1 DF (160 MG VALS AND 25 MG HYDRO), DAILY
  2. SER [Concomitant]

REACTIONS (5)
  - DYSPNOEA [None]
  - LUNG INFECTION PSEUDOMONAL [None]
  - PNEUMONIA KLEBSIELLA [None]
  - ANXIETY [None]
  - CARDIO-RESPIRATORY ARREST [None]
